FAERS Safety Report 8464338-3 (Version None)
Quarter: 2012Q2

REPORT INFORMATION
  Report Type: 
  Country: None (occurrence: None)
  Receive Date: 20120625
  Receipt Date: 20120612
  Transmission Date: 20120825
  Serious: Yes (Hospitalization)
  Sender: FDA-Public Use
  Company Number: US-BAYER-2012-061440

PATIENT
  Age: 78 Year
  Sex: Male

DRUGS (4)
  1. ASPIRIN [Suspect]
     Indication: ILL-DEFINED DISORDER
  2. XARELTO [Interacting]
     Dosage: 15 MG, UNK
     Route: 048
  3. XARELTO [Interacting]
     Dosage: 15 MG, UNK
     Route: 048
  4. LOVENOX [Interacting]
     Indication: ATRIAL FIBRILLATION

REACTIONS (1)
  - HAEMATOMA [None]
